FAERS Safety Report 24852986 (Version 2)
Quarter: 2025Q1

REPORT INFORMATION
  Report Type: Report from Study
  Country: US (occurrence: US)
  Receive Date: 20250116
  Receipt Date: 20250317
  Transmission Date: 20250409
  Serious: Yes (Other)
  Sender: NOVARTIS
  Company Number: US-002147023-NVSC2024US037802

PATIENT
  Sex: Female

DRUGS (1)
  1. KESIMPTA [Suspect]
     Active Substance: OFATUMUMAB
     Indication: Product used for unknown indication
     Route: 065

REACTIONS (17)
  - Neuropathy peripheral [Unknown]
  - Malaise [Unknown]
  - Visual impairment [Unknown]
  - Energy increased [Unknown]
  - Fatigue [Unknown]
  - Headache [Unknown]
  - Vitamin D decreased [Unknown]
  - Feeling abnormal [Unknown]
  - Attention deficit hyperactivity disorder [Unknown]
  - Memory impairment [Unknown]
  - Asthma [Unknown]
  - Hypoaesthesia [Unknown]
  - Clumsiness [Unknown]
  - Influenza [Unknown]
  - Pain [Unknown]
  - Sensory loss [Unknown]
  - Carpal tunnel syndrome [Unknown]
